FAERS Safety Report 6773653 (Version 2)
Quarter: 2017Q3

REPORT INFORMATION
  Report Type: Report from Study
  Country: JP (occurrence: JP)
  Receive Date: 20080929
  Receipt Date: 20170707
  Transmission Date: 20171128
  Serious: Yes (Death, Other)
  Sender: FDA-Public Use
  Company Number: JP-BRISTOL-MYERS SQUIBB COMPANY-14347124

PATIENT

DRUGS (5)
  1. ESTRAMUSTINE PHOSPHATE SODIUM [Suspect]
     Active Substance: ESTRAMUSTINE PHOSPHATE SODIUM
     Indication: PROSTATE CANCER
     Dosage: 10 MG/KG, UNK
     Route: 048
  2. DEXAMETHASONE SODIUM PHOSPHATE. [Concomitant]
     Active Substance: DEXAMETHASONE SODIUM PHOSPHATE
     Indication: PRODUCT USED FOR UNKNOWN INDICATION
     Dosage: 8 MG, QWK
     Route: 042
  3. DOCETAXEL. [Suspect]
     Active Substance: DOCETAXEL
     Indication: PROSTATE CANCER
     Dosage: 30 MG/M2, UNK
     Route: 042
  4. TAXOL [Suspect]
     Active Substance: PACLITAXEL
     Indication: PROSTATE CANCER
     Dosage: UNK
     Route: 041
  5. CARBOPLATIN. [Suspect]
     Active Substance: CARBOPLATIN
     Indication: PROSTATE CANCER
     Dosage: AREA UNDER CURVE OF 6 ON DAY1 OF EVERY 4-WEEK CYCLE.
     Route: 041

REACTIONS (1)
  - Interstitial lung disease [Fatal]
